FAERS Safety Report 5900870-1 (Version None)
Quarter: 2008Q3

REPORT INFORMATION
  Report Type: 
  Country: None (occurrence: None)
  Receive Date: 20080929
  Receipt Date: 20071005
  Transmission Date: 20090109
  Serious: No
  Sender: FDA-Public Use
  Company Number: A0686345A

PATIENT
  Age: 54 Year
  Sex: Female

DRUGS (7)
  1. LAMICTAL [Suspect]
     Dosage: 25MG PER DAY
     Route: 048
     Dates: start: 20070501, end: 20071003
  2. NEURONTIN [Concomitant]
  3. AVINZA [Concomitant]
     Dosage: 150MG PER DAY
  4. LEVOTHROID [Concomitant]
     Dosage: 100MCG UNKNOWN
  5. HYDROCORTISONE [Concomitant]
     Dosage: 10MG UNKNOWN
  6. IRON [Concomitant]
  7. VALTREX [Concomitant]

REACTIONS (2)
  - RASH ERYTHEMATOUS [None]
  - RASH VESICULAR [None]
